FAERS Safety Report 7899843-1 (Version None)
Quarter: 2011Q4

REPORT INFORMATION
  Report Type: 
  Country: None (occurrence: None)
  Receive Date: 20111107
  Receipt Date: 20110926
  Transmission Date: 20120403
  Serious: No
  Sender: FDA-Public Use
  Company Number: US-AMGEN-USASP2011039046

PATIENT
  Age: 75 Year
  Sex: Male

DRUGS (1)
  1. ENBREL [Suspect]
     Indication: ARTHRITIS
     Dosage: 50 MG, ONCE IN TEN DAYS
     Dates: start: 20080328

REACTIONS (2)
  - THERAPEUTIC RESPONSE DECREASED [None]
  - ARTHRITIS [None]
